FAERS Safety Report 8392747-X (Version None)
Quarter: 2012Q2

REPORT INFORMATION
  Report Type: 
  Country: None (occurrence: None)
  Receive Date: 20120529
  Receipt Date: 20120523
  Transmission Date: 20120825
  Serious: Yes (Life-Threatening, Other)
  Sender: FDA-Public Use
  Company Number: PHHY2012US044163

PATIENT
  Age: 46 Year
  Sex: Female

DRUGS (3)
  1. FLUOROURACIL [Concomitant]
     Indication: CHEMOTHERAPY
  2. OXALIPLATIN [Suspect]
     Indication: CHEMOTHERAPY
  3. LEUCOVORIN CALCIUM [Concomitant]
     Indication: CHEMOTHERAPY

REACTIONS (6)
  - HEPATOCELLULAR INJURY [None]
  - NAUSEA [None]
  - HEPATIC ENZYME INCREASED [None]
  - VERTIGO [None]
  - TINNITUS [None]
  - OTOTOXICITY [None]
